FAERS Safety Report 17092837 (Version 2)
Quarter: 2019Q4

REPORT INFORMATION
  Report Type: Spontaneous
  Country: DE (occurrence: DE)
  Receive Date: 20191129
  Receipt Date: 20191203
  Transmission Date: 20200122
  Serious: Yes (Other)
  Sender: FDA-Public Use
  Company Number: DE-PFIZER INC-2019512938

PATIENT
  Age: 17 Year
  Sex: Male

DRUGS (2)
  1. AZATHIOPRINE. [Concomitant]
     Active Substance: AZATHIOPRINE
     Dosage: UNK
  2. FILGRASTIM [Suspect]
     Active Substance: FILGRASTIM
     Dosage: UNK
     Dates: start: 2017

REACTIONS (5)
  - Intestinal stenosis [Unknown]
  - Large intestinal ulcer [Unknown]
  - Off label use [Unknown]
  - Product use in unapproved indication [Unknown]
  - Colitis [Unknown]

NARRATIVE: CASE EVENT DATE: 2017
